FAERS Safety Report 6300063-2 (Version None)
Quarter: 2009Q3

REPORT INFORMATION
  Report Type: 
  Country: None (occurrence: None)
  Receive Date: 20090806
  Receipt Date: 20090728
  Transmission Date: 20100115
  Serious: Yes (Hospitalization, Other)
  Sender: FDA-Public Use
  Company Number: US-ELI_LILLY_AND_COMPANY-US200906003286

PATIENT
  Sex: Male

DRUGS (6)
  1. CYMBALTA [Suspect]
     Indication: DEPRESSION
     Dosage: 60 MG, UNK
     Dates: start: 20050101
  2. LYRICA [Concomitant]
  3. ANTIHYPERTENSIVES [Concomitant]
     Indication: BLOOD PRESSURE
  4. HYPNOTICS AND SEDATIVES [Concomitant]
     Indication: INSOMNIA
  5. LANTUS [Concomitant]
     Dates: start: 20050101
  6. HUMALOG [Concomitant]

REACTIONS (6)
  - DIZZINESS [None]
  - FOOT AMPUTATION [None]
  - LOCALISED INFECTION [None]
  - OSTEOMYELITIS [None]
  - TINNITUS [None]
  - TOE AMPUTATION [None]
